FAERS Safety Report 4745095-0 (Version None)
Quarter: 2005Q3

REPORT INFORMATION
  Report Type: 
  Country: None (occurrence: None)
  Receive Date: 20050811
  Receipt Date: 20050729
  Transmission Date: 20060218
  Serious: Yes (Hospitalization, Disabling)
  Sender: FDA-Public Use
  Company Number: 216528

PATIENT
  Age: 62 Year
  Sex: Female
  Weight: 72 kg

DRUGS (6)
  1. EFALIZUMAB (EFALIZUMAB) PWDR + SOLVENT, INJECTION SOLN, 125 MG [Suspect]
     Indication: PSORIASIS
     Dosage: 1 MG, 1/WEEK, SUBCUTANEOUS
     Route: 058
     Dates: start: 20050309, end: 20050720
  2. NEXIUM [Concomitant]
  3. WELLBUTRIN XL [Concomitant]
  4. VITAMIN E [Concomitant]
  5. CENTRUM SILVER (MULTIVITAMINS NOS, MINERAL NOS) [Concomitant]
  6. DOVONEX [Concomitant]

REACTIONS (2)
  - LYMPHADENOPATHY [None]
  - SINUSITIS [None]
